FAERS Safety Report 9928520 (Version 1)
Quarter: 2014Q1

REPORT INFORMATION
  Report Type: Spontaneous
  Country: US (occurrence: None)
  Receive Date: 20140225
  Receipt Date: 20140225
  Transmission Date: 20141002
  Serious: Yes (Other)
  Sender: FDA-Public Use
  Company Number: 2014AP001393

PATIENT
  Sex: Female

DRUGS (1)
  1. ATORVASTATIN [Suspect]

REACTIONS (6)
  - Hypersensitivity [None]
  - Cough [None]
  - Pulmonary congestion [None]
  - Headache [None]
  - Eye pruritus [None]
  - Diarrhoea [None]
